FAERS Safety Report 23145350 (Version 1)
Quarter: 2023Q4

REPORT INFORMATION
  Report Type: Spontaneous
  Country: US (occurrence: US)
  Receive Date: 20231103
  Receipt Date: 20231103
  Transmission Date: 20240109
  Serious: No
  Sender: FDA-Public Use
  Company Number: US-BIOMARINAP-US-2023-153701

PATIENT

DRUGS (3)
  1. VOXZOGO [Suspect]
     Active Substance: VOSORITIDE
     Indication: Osteochondrodysplasia
     Dosage: 0.6 MILLIGRAM, QD
     Route: 058
  2. VOXZOGO [Suspect]
     Active Substance: VOSORITIDE
     Indication: Short stature
  3. ADDERALL [Concomitant]
     Active Substance: AMPHETAMINE ASPARTATE\AMPHETAMINE SULFATE\DEXTROAMPHETAMINE SACCHARATE\DEXTROAMPHETAMINE SULFATE
     Indication: Product used for unknown indication

REACTIONS (3)
  - Hypersensitivity [Unknown]
  - Rash [Unknown]
  - Decreased appetite [Unknown]
